FAERS Safety Report 9775800 (Version 2)
Quarter: 2014Q2

REPORT INFORMATION
  Report Type: Spontaneous
  Country: US (occurrence: US)
  Receive Date: 20131220
  Receipt Date: 20140507
  Transmission Date: 20141212
  Serious: Yes (Hospitalization)
  Sender: FDA-Public Use
  Company Number: US-GLAXOSMITHKLINE-A1034733A

PATIENT
  Age: 53 Year
  Sex: Male

DRUGS (1)
  1. AVANDARYL [Suspect]
     Indication: DIABETES MELLITUS
     Route: 048
     Dates: start: 200706, end: 201101

REACTIONS (3)
  - Cerebrovascular accident [Unknown]
  - Contusion [Unknown]
  - Ischaemic stroke [Unknown]
